FAERS Safety Report 7806499-2 (Version None)
Quarter: 2011Q4

REPORT INFORMATION
  Report Type: 
  Country: None (occurrence: None)
  Receive Date: 20111011
  Receipt Date: 20111004
  Transmission Date: 20120403
  Serious: Yes (Hospitalization)
  Sender: FDA-Public Use
  Company Number: US-B.I. PHARMACEUTICALS,INC./RIDGEFIELD-2011-BP-23423BP

PATIENT
  Sex: Female

DRUGS (6)
  1. PRADAXA [Suspect]
     Indication: ATRIAL FIBRILLATION
     Dosage: 300 MG
     Route: 048
     Dates: start: 20110601
  2. PLAVIX [Concomitant]
     Indication: STENT PLACEMENT
  3. NEXIUM [Concomitant]
     Indication: GASTROOESOPHAGEAL REFLUX DISEASE
  4. PRESTIQU [Concomitant]
     Indication: DEPRESSION
  5. ACCUPRIL [Concomitant]
     Indication: HYPERTENSION
  6. TENORMIN [Concomitant]
     Indication: CARDIAC DISORDER

REACTIONS (1)
  - CARDIAC ABLATION [None]
